FAERS Safety Report 4536976-1 (Version None)
Quarter: 2004Q4

REPORT INFORMATION
  Report Type: 
  Country: None (occurrence: None)
  Receive Date: 20041220
  Receipt Date: 20041207
  Transmission Date: 20050328
  Serious: Yes (Disabling)
  Sender: FDA-Public Use
  Company Number: HQWYE739202DEC04

PATIENT
  Sex: Female

DRUGS (7)
  1. EFFEXOR XR [Suspect]
     Dosage: 150 MG 1X PER 1 DAY, ORAL
     Route: 048
     Dates: end: 20041101
  2. VIOXX [Suspect]
  3. EFFEXOR XR [Suspect]
     Dosage: 112.5 MG 1X  PER 1 DAY, ORAL
     Route: 048
     Dates: start: 20041101, end: 20040101
  4. EFFEXOR XR [Suspect]
     Dosage: 75 MG 1X PER 1 DAY, ORAL
     Route: 048
     Dates: start: 20040101, end: 20040101
  5. EFFEXOR XR [Suspect]
     Dosage: 37.5 MG 1X PER 1 DAY, ORAL
     Route: 048
     Dates: start: 20040101, end: 20041215
  6. AMBIEN [Concomitant]
  7. LIPITOR [Concomitant]

REACTIONS (6)
  - CATARACT [None]
  - EYE HAEMORRHAGE [None]
  - RETINAL HAEMORRHAGE [None]
  - RETINAL TEAR [None]
  - UNEVALUABLE EVENT [None]
  - VITREOUS FLOATERS [None]
